FAERS Safety Report 21268055 (Version 1)
Quarter: 2022Q3

REPORT INFORMATION
  Report Type: Spontaneous
  Country: US (occurrence: US)
  Receive Date: 20220829
  Receipt Date: 20220829
  Transmission Date: 20221026
  Serious: Yes (Hospitalization)
  Sender: FDA-Public Use
  Company Number: US-BRISTOL-MYERS SQUIBB COMPANY-2022-095077

PATIENT
  Age: 71 Year
  Sex: Female

DRUGS (1)
  1. ORENCIA [Suspect]
     Active Substance: ABATACEPT
     Indication: Systemic scleroderma
     Dosage: 125 MG/ML, EVERY WEEK
     Route: 058
     Dates: start: 202201

REACTIONS (3)
  - Malaise [Unknown]
  - Adverse event [Unknown]
  - Intentional product use issue [Unknown]
